FAERS Safety Report 6360139-0 (Version None)
Quarter: 2009Q3

REPORT INFORMATION
  Report Type: 
  Country: None (occurrence: None)
  Receive Date: 20090917
  Receipt Date: 20090914
  Transmission Date: 20100115
  Serious: Yes (Hospitalization, Other)
  Sender: FDA-Public Use
  Company Number: DE-AVENTIS-200912115DE

PATIENT
  Age: 64 Year
  Sex: Male
  Weight: 81 kg

DRUGS (9)
  1. ARAVA [Suspect]
     Indication: RHEUMATOID ARTHRITIS
     Route: 048
     Dates: start: 20040302
  2. ARAVA [Suspect]
     Route: 048
     Dates: start: 20021029, end: 20040302
  3. CORTISON [Concomitant]
     Dosage: DOSE: NOT REPORTED
  4. KARVEZIDE [Concomitant]
     Indication: HYPERTENSION
     Dosage: DOSE: 150 MG / 125 MG
     Route: 048
  5. DECORTIN [Concomitant]
     Indication: POLYARTHRITIS
     Route: 048
  6. AMLODIPINE [Concomitant]
     Indication: HYPERTENSION
     Route: 048
  7. CREON [Concomitant]
     Indication: PANCREATIC INSUFFICIENCY
     Dosage: DOSE: 3X1-3X2
     Route: 048
     Dates: start: 20050401
  8. LEVEMIR [Concomitant]
     Dosage: DOSE: NOT REPORTED
     Route: 058
  9. HUMAN INSULIN [Concomitant]
     Dosage: DOSE: NOT REPORTED
     Route: 058

REACTIONS (1)
  - PANCREATIC CARCINOMA RESECTABLE [None]
